FAERS Safety Report 9257558 (Version 5)
Quarter: 2014Q1

REPORT INFORMATION
  Report Type: Spontaneous
  Country: US (occurrence: US)
  Receive Date: 20130426
  Receipt Date: 20140131
  Transmission Date: 20141002
  Serious: Yes (Hospitalization, Other)
  Sender: FDA-Public Use
  Company Number: US-ASTRAZENECA-2013SE27711

PATIENT
  Age: 53 Year
  Sex: Female
  Weight: 77.1 kg

DRUGS (22)
  1. NEXIUM [Suspect]
     Indication: GASTROOESOPHAGEAL REFLUX DISEASE
     Route: 048
     Dates: start: 2000
  2. NEXIUM [Suspect]
     Indication: GASTROOESOPHAGEAL REFLUX DISEASE
     Route: 048
     Dates: start: 2004
  3. NEXIUM [Suspect]
     Indication: GASTROOESOPHAGEAL REFLUX DISEASE
     Route: 048
     Dates: start: 20081218
  4. PRILOSEC [Suspect]
     Indication: GASTROOESOPHAGEAL REFLUX DISEASE
     Route: 048
     Dates: start: 1998, end: 2000
  5. TUMS [Concomitant]
     Indication: GASTROOESOPHAGEAL REFLUX DISEASE
     Dosage: AS NEEDED
     Dates: start: 1998
  6. LIPITOR [Concomitant]
  7. ZETIA [Concomitant]
     Indication: BLOOD CHOLESTEROL INCREASED
  8. METFORMIN [Concomitant]
  9. LOSARTAN [Concomitant]
  10. JANUVIA [Concomitant]
     Indication: DIABETES MELLITUS
  11. HYDROCHLOROTHIAZIDE [Concomitant]
     Dates: start: 20060702
  12. MERIDIA [Concomitant]
  13. ALPRAZOLAM [Concomitant]
     Dates: start: 20090803
  14. PROMETHAZINE [Concomitant]
     Dates: start: 20090815
  15. ONDANSETRON [Concomitant]
     Dates: start: 20090824
  16. BISOPROLOL FUM [Concomitant]
     Dates: start: 20091102
  17. TRICOR [Concomitant]
     Dates: start: 20120623
  18. FLUCONAZOLE [Concomitant]
     Dates: start: 20130108
  19. AVELOX [Concomitant]
     Dates: start: 20130108
  20. ZOLPIDEM [Concomitant]
     Dates: start: 20131217
  21. ESCITALOPRAM [Concomitant]
     Dates: start: 20130517
  22. CEFDINIR [Concomitant]
     Dates: start: 20100426

REACTIONS (12)
  - Breast cancer stage I [Unknown]
  - Breast disorder [Unknown]
  - Cervical polyp [Unknown]
  - Osteoporosis [Unknown]
  - Bone disorder [Unknown]
  - Lower limb fracture [Unknown]
  - Fall [Unknown]
  - Diabetes mellitus [Unknown]
  - Limb injury [Unknown]
  - Fibula fracture [Unknown]
  - Tibia fracture [Unknown]
  - Ligament sprain [Unknown]
